FAERS Safety Report 15784629 (Version 2)
Quarter: 2024Q4

REPORT INFORMATION
  Report Type: Spontaneous
  Country: US (occurrence: US)
  Receive Date: 20190103
  Receipt Date: 20241226
  Transmission Date: 20250115
  Serious: Yes (Hospitalization, Other)
  Sender: ALKEM
  Company Number: None

PATIENT
  Age: 21 Year
  Sex: Male

DRUGS (8)
  1. AZATHIOPRINE [Suspect]
     Active Substance: AZATHIOPRINE
     Indication: Immunosuppressant drug therapy
     Dosage: UNK
     Route: 065
  2. MYCOPHENOLATE MOFETIL [Suspect]
     Active Substance: MYCOPHENOLATE MOFETIL
     Indication: Immunosuppressant drug therapy
     Dosage: UNK
     Route: 065
  3. TACROLIMUS [Suspect]
     Active Substance: TACROLIMUS
     Indication: Immunosuppressant drug therapy
     Dosage: UNK
     Route: 065
  4. THYMOCYTE IMMUNE GLOBULIN NOS [Concomitant]
     Active Substance: THYMOCYTE IMMUNE GLOBULIN NOS
     Indication: Transplant rejection
     Dosage: 1.5 MILLIGRAM/KILOGRAM
     Route: 065
  5. THYMOCYTE IMMUNE GLOBULIN NOS [Concomitant]
     Active Substance: THYMOCYTE IMMUNE GLOBULIN NOS
     Dosage: 6 MILLIGRAM/KILOGRAM
     Route: 065
  6. BORTEZOMIB [Concomitant]
     Active Substance: BORTEZOMIB
     Indication: Transplant rejection
     Dosage: 1.3 MILLIGRAM/SQ. METER
     Route: 065
  7. MEPREDNISONE [Concomitant]
     Active Substance: MEPREDNISONE
     Indication: Transplant rejection
     Dosage: 1500 MILLIGRAM
     Route: 065
  8. RITUXIMAB [Concomitant]
     Active Substance: RITUXIMAB
     Indication: Transplant rejection
     Dosage: 375 MILLIGRAM/SQ. METER
     Route: 065

REACTIONS (7)
  - Aspergillus infection [Unknown]
  - Cytomegalovirus infection [Unknown]
  - HIV infection [Unknown]
  - HIV associated nephropathy [Unknown]
  - Leukopenia [Unknown]
  - Transplant rejection [Unknown]
  - Diarrhoea [Recovering/Resolving]
